FAERS Safety Report 5500312-4 (Version None)
Quarter: 2007Q4

REPORT INFORMATION
  Report Type: 
  Country: None (occurrence: None)
  Receive Date: 20071025
  Receipt Date: 20070723
  Transmission Date: 20080405
  Serious: Yes (Other)
  Sender: FDA-Public Use
  Company Number: GB-MHRA-ADR 20144240

PATIENT
  Age: 64 Year
  Sex: Female

DRUGS (5)
  1. TERBISIL (TERBINAFINE TABLET) [Suspect]
     Indication: ONYCHOMYCOSIS
     Dosage: 250 MG, ORAL
     Route: 048
     Dates: start: 20070618, end: 20070709
  2. BENDROFLUAZIDE (BENDROFLUAZIDE, 2,5 MG, DAILY) [Concomitant]
  3. LISINOPRIL (LISINOPRIL, 10 MG, DAILY) [Concomitant]
  4. ACETAMINOPHEN [Concomitant]
  5. SIMVASTATIN (SIMVASTATIN, 40 MG, DAILY) [Concomitant]

REACTIONS (1)
  - VASCULITIS [None]
